FAERS Safety Report 5338695-0 (Version None)
Quarter: 2007Q2

REPORT INFORMATION
  Report Type: 
  Country: None (occurrence: None)
  Receive Date: 20070530
  Receipt Date: 20070525
  Transmission Date: 20071010
  Serious: Yes (Other)
  Sender: FDA-Public Use
  Company Number: A0653031A

PATIENT
  Age: 63 Year
  Sex: Male

DRUGS (2)
  1. AVANDARYL [Suspect]
     Route: 048
     Dates: start: 20060616
  2. NO CONCURRENT MEDICATION [Concomitant]

REACTIONS (4)
  - APHAGIA [None]
  - BLOOD GLUCOSE DECREASED [None]
  - FACIAL PARESIS [None]
  - HEADACHE [None]
